FAERS Safety Report 11129329 (Version 3)
Quarter: 2015Q2

REPORT INFORMATION
  Report Type: Spontaneous
  Country: US (occurrence: US)
  Receive Date: 20150521
  Receipt Date: 20150611
  Transmission Date: 20150821
  Serious: Yes (Hospitalization)
  Sender: FDA-Public Use
  Company Number: US-PFIZER INC-2015169470

PATIENT
  Age: 65 Year
  Sex: Female

DRUGS (1)
  1. IBRANCE [Suspect]
     Active Substance: PALBOCICLIB
     Indication: BREAST CANCER
     Dosage: 125 MG, CYCLIC (1 DAILY FOR 21 DAYS OFF)
     Route: 048
     Dates: start: 20150430

REACTIONS (7)
  - Asthenia [Unknown]
  - Oedema peripheral [Not Recovered/Not Resolved]
  - Stomatitis [Unknown]
  - Muscular weakness [Not Recovered/Not Resolved]
  - Breast cancer [Unknown]
  - Fatigue [Unknown]
  - Disease progression [Unknown]

NARRATIVE: CASE EVENT DATE: 201505
